FAERS Safety Report 10209899 (Version 1)
Quarter: 2014Q2

REPORT INFORMATION
  Report Type: Spontaneous
  Country: US (occurrence: US)
  Receive Date: 20140602
  Receipt Date: 20140602
  Transmission Date: 20141212
  Serious: Yes (Life-Threatening, Other)
  Sender: FDA-Public Use
  Company Number: US-SHIRE-US201402528

PATIENT
  Age: 8 Month
  Sex: 0

DRUGS (1)
  1. VYVANSE [Suspect]
     Indication: ACCIDENTAL EXPOSURE TO PRODUCT BY CHILD
     Dosage: UNK, UNKNOWN
     Route: 065

REACTIONS (3)
  - Apparent life threatening event [Unknown]
  - Convulsion [Unknown]
  - Accidental exposure to product by child [Unknown]
